FAERS Safety Report 25178441 (Version 1)
Quarter: 2025Q2

REPORT INFORMATION
  Report Type: Spontaneous
  Country: US (occurrence: US)
  Receive Date: 20250409
  Receipt Date: 20250409
  Transmission Date: 20250716
  Serious: No
  Sender: TAKEDA
  Company Number: US-TAKEDA-2025TUS033145

PATIENT
  Sex: Female

DRUGS (3)
  1. VYVANSE [Suspect]
     Active Substance: LISDEXAMFETAMINE DIMESYLATE
     Indication: Attention deficit hyperactivity disorder
  2. METHYLPHENIDATE [Suspect]
     Active Substance: METHYLPHENIDATE
     Indication: Attention deficit hyperactivity disorder
  3. DAYTRANA [Suspect]
     Active Substance: METHYLPHENIDATE
     Indication: Product used for unknown indication

REACTIONS (4)
  - Weight increased [Unknown]
  - Inability to afford medication [Unknown]
  - Insurance issue [Unknown]
  - Drug ineffective [Unknown]
